FAERS Safety Report 7654635 (Version 4)
Quarter: 2012Q4

REPORT INFORMATION
  Report Type: Report from Study
  Country: KE (occurrence: KE)
  Receive Date: 20101103
  Receipt Date: 20121119
  Transmission Date: 20130627
  Serious: Yes (Death, Hospitalization)
  Sender: FDA-Public Use
  Company Number: KE-SANOFI-AVENTIS-2010SA066242

PATIENT
  Age: 34 Year
  Sex: Male
  Weight: 52 kg

DRUGS (7)
  1. RIFAMPICIN [Suspect]
     Indication: PULMONARY TUBERCULOSIS
     Route: 048
     Dates: start: 20100917, end: 20101025
  2. ISONIAZID [Suspect]
     Indication: PULMONARY TUBERCULOSIS
     Route: 048
     Dates: start: 20100917, end: 20101025
  3. ETHAMBUTOL [Suspect]
     Indication: PULMONARY TUBERCULOSIS
     Route: 048
     Dates: start: 20100917, end: 20101025
  4. PYRAZINAMIDE [Suspect]
     Indication: PULMONARY TUBERCULOSIS
     Route: 048
     Dates: start: 20100917, end: 20101025
  5. MOXIFLOXACIN [Suspect]
     Indication: PULMONARY TUBERCULOSIS
     Route: 048
     Dates: start: 20100917, end: 20101025
  6. PYRIDOXINE [Concomitant]
     Indication: PROPHYLAXIS
     Route: 048
     Dates: start: 20100917, end: 20101025
  7. SULFAMETHOXAZOLE/TRIMETHOPRIM [Concomitant]
     Dosage: dose: 960 units not provided
     Dates: start: 20101008, end: 20101029

REACTIONS (8)
  - Encephalitis [Fatal]
  - Immunosuppression [Fatal]
  - Coma [Fatal]
  - Jaundice [Fatal]
  - Dehydration [Fatal]
  - Tachycardia [Not Recovered/Not Resolved]
  - Vomiting [Not Recovered/Not Resolved]
  - Pyrexia [Not Recovered/Not Resolved]
